FAERS Safety Report 7368874-2 (Version None)
Quarter: 2011Q1

REPORT INFORMATION
  Report Type: 
  Country: None (occurrence: None)
  Receive Date: 20110323
  Receipt Date: 20110317
  Transmission Date: 20110831
  Serious: Yes (Other)
  Sender: FDA-Public Use
  Company Number: CH-PFIZER INC-2011059684

PATIENT
  Age: 25 Year
  Sex: Male

DRUGS (1)
  1. LYRICA [Suspect]
     Dosage: 150MG 6XDAILY

REACTIONS (4)
  - SOMNOLENCE [None]
  - SLEEP APNOEA SYNDROME [None]
  - ACCIDENTAL OVERDOSE [None]
  - FATIGUE [None]
